FAERS Safety Report 7887634-7 (Version None)
Quarter: 2011Q4

REPORT INFORMATION
  Report Type: 
  Country: None (occurrence: None)
  Receive Date: 20111103
  Receipt Date: 20111026
  Transmission Date: 20120403
  Serious: No
  Sender: FDA-Public Use
  Company Number: US-BIOGENIDEC-2011BI041030

PATIENT
  Age: 46 Year
  Sex: Female

DRUGS (1)
  1. TYSABRI [Suspect]
     Indication: MULTIPLE SCLEROSIS
     Route: 042
     Dates: start: 20101215, end: 20110810

REACTIONS (5)
  - INFLUENZA [None]
  - FALL [None]
  - EXCORIATION [None]
  - CONTUSION [None]
  - GENE MUTATION IDENTIFICATION TEST POSITIVE [None]
